FAERS Safety Report 7596365-2 (Version None)
Quarter: 2011Q3

REPORT INFORMATION
  Report Type: 
  Country: None (occurrence: None)
  Receive Date: 20110707
  Receipt Date: 20110623
  Transmission Date: 20111222
  Serious: Yes (Other)
  Sender: FDA-Public Use
  Company Number: US-B.I. PHARMACEUTICALS,INC./RIDGEFIELD-2011-BP-09045BP

PATIENT
  Sex: Female

DRUGS (6)
  1. FEMARA [Concomitant]
  2. VITAMIN D [Concomitant]
  3. PRADAXA [Suspect]
     Indication: THROMBOSIS
     Dosage: 300 MG
     Dates: start: 20101209, end: 20110425
  4. PRILOSEC [Concomitant]
  5. VERPAMIL HCL [Concomitant]
  6. PLAVIX [Concomitant]

REACTIONS (2)
  - CONSTIPATION [None]
  - INTESTINAL OBSTRUCTION [None]
